FAERS Safety Report 5122312-9 (Version None)
Quarter: 2006Q4

REPORT INFORMATION
  Report Type: 
  Country: None (occurrence: None)
  Receive Date: 20061003
  Receipt Date: 20060920
  Transmission Date: 20070319
  Serious: Yes (Other)
  Sender: FDA-Public Use
  Company Number: 2006113149

PATIENT
  Age: 54 Year
  Sex: Male
  Weight: 86.1834 kg

DRUGS (4)
  1. MYCOBUTIN [Suspect]
     Indication: HEPATITIS C
  2. INTRON A [Concomitant]
  3. REBETOL [Concomitant]
  4. PEGINTERFERON ALFA-2B [Concomitant]

REACTIONS (4)
  - DRUG DISPENSING ERROR [None]
  - HEADACHE [None]
  - INCORRECT DOSE ADMINISTERED [None]
  - NEURALGIA [None]
